FAERS Safety Report 18291012 (Version 5)
Quarter: 2021Q3

REPORT INFORMATION
  Report Type: Spontaneous
  Country: DE (occurrence: DE)
  Receive Date: 20200922
  Receipt Date: 20210927
  Transmission Date: 20211014
  Serious: Yes (Hospitalization, Other)
  Sender: FDA-Public Use
  Company Number: DE-BRISTOL-MYERS SQUIBB COMPANY-BMS-2020-075589

PATIENT
  Age: 53 Year
  Sex: Female

DRUGS (2)
  1. OPDIVO [Suspect]
     Active Substance: NIVOLUMAB
     Indication: MALIGNANT MELANOMA
     Dosage: UNK
     Route: 065
     Dates: start: 202004
  2. YERVOY [Suspect]
     Active Substance: IPILIMUMAB
     Indication: MALIGNANT MELANOMA
     Dosage: UNK
     Route: 065
     Dates: start: 202004

REACTIONS (11)
  - Polyneuropathy [Unknown]
  - Melaena [Unknown]
  - Guillain-Barre syndrome [Unknown]
  - Paresis [Unknown]
  - Bladder disorder [Unknown]
  - Pain in extremity [Unknown]
  - Malignant neoplasm progression [Unknown]
  - Diarrhoea [Unknown]
  - Hypoaesthesia [Unknown]
  - Colitis [Unknown]
  - Defaecation disorder [Unknown]
